FAERS Safety Report 13555401 (Version 1)
Quarter: 2017Q2

REPORT INFORMATION
  Report Type: Report from Study
  Country: None (occurrence: IT)
  Receive Date: 20170517
  Receipt Date: 20170517
  Transmission Date: 20170830
  Serious: Yes (Death)
  Sender: FDA-Public Use
  Company Number: IT-ABBVIE-17K-083-1978127-00

PATIENT
  Sex: Male
  Weight: 78 kg

DRUGS (1)
  1. DUODOPA [Suspect]
     Active Substance: CARBIDOPA\LEVODOPA
     Indication: PARKINSON^S DISEASE
     Dosage: MD 10,5 +3ML??CR 2.7??ED 2.0
     Route: 050
     Dates: start: 20130327, end: 20170409

REACTIONS (3)
  - Stoma site extravasation [Fatal]
  - Cerebrovascular accident [Fatal]
  - Nervous system disorder [Fatal]
